FAERS Safety Report 8313460-0 (Version None)
Quarter: 2012Q2

REPORT INFORMATION
  Report Type: 
  Country: None (occurrence: None)
  Receive Date: 20120425
  Receipt Date: 20120425
  Transmission Date: 20120825
  Serious: Yes (Disabling)
  Sender: FDA-Public Use
  Company Number: None

PATIENT
  Age: 45 Year
  Sex: Male
  Weight: 102.5129 kg

DRUGS (1)
  1. GEMFIBROZIL [Suspect]
     Indication: BLOOD TRIGLYCERIDES INCREASED
     Dosage: 1 2X M/ORAL
     Route: 048
     Dates: start: 20110801

REACTIONS (6)
  - KNEE DEFORMITY [None]
  - JOINT RANGE OF MOTION DECREASED [None]
  - ARTHRITIS [None]
  - ARTHRALGIA [None]
  - ABASIA [None]
  - ARTHROPATHY [None]
